FAERS Safety Report 17488675 (Version 1)
Quarter: 2020Q1

REPORT INFORMATION
  Report Type: Spontaneous
  Country: GR (occurrence: GR)
  Receive Date: 20200303
  Receipt Date: 20200303
  Transmission Date: 20200409
  Serious: Yes (Hospitalization, Congenital Anomaly, Other)
  Sender: FDA-Public Use
  Company Number: GR-TEVA-2018-GR-952910

PATIENT
  Age: 14 Month
  Sex: Female

DRUGS (5)
  1. CARBOPLATIN. [Concomitant]
     Active Substance: CARBOPLATIN
     Indication: EPENDYMOMA MALIGNANT
  2. CISPLATIN. [Concomitant]
     Active Substance: CISPLATIN
     Indication: EPENDYMOMA MALIGNANT
  3. CYCLOPHOSPHAMIDE. [Concomitant]
     Active Substance: CYCLOPHOSPHAMIDE
     Indication: EPENDYMOMA MALIGNANT
  4. METHOTREXATE. [Concomitant]
     Active Substance: METHOTREXATE
     Indication: EPENDYMOMA MALIGNANT
  5. VINCRISTINE [Suspect]
     Active Substance: VINCRISTINE
     Indication: EPENDYMOMA MALIGNANT
     Route: 065

REACTIONS (3)
  - Hereditary motor and sensory neuropathy [Recovered/Resolved]
  - Unmasking of previously unidentified disease [Recovered/Resolved]
  - Neurotoxicity [Recovered/Resolved]
